FAERS Safety Report 5337494-3 (Version None)
Quarter: 2007Q2

REPORT INFORMATION
  Report Type: 
  Country: None (occurrence: None)
  Receive Date: 20070524
  Receipt Date: 20070521
  Transmission Date: 20071010
  Serious: Yes (Death, Hospitalization, Other)
  Sender: FDA-Public Use
  Company Number: THQ2007A00371

PATIENT
  Age: 81 Year
  Sex: Male

DRUGS (3)
  1. LUCRIN DEPOT (LEPROLIDE ACETATE) [Suspect]
     Indication: PROSTATE CANCER
     Dosage: 3.75 MG (3.75 MG, 1 IN 1 M);
     Dates: start: 20050310
  2. CYPROTERONE ACETATE [Concomitant]
  3. DOCETAXEL [Concomitant]

REACTIONS (7)
  - AZOTAEMIA [None]
  - HYDRONEPHROSIS [None]
  - MALIGNANT NEOPLASM PROGRESSION [None]
  - METASTASES TO BONE [None]
  - METASTASES TO LIVER [None]
  - METASTASES TO LYMPH NODES [None]
  - PROSTATE CANCER [None]
